FAERS Safety Report 5090708-X (Version None)
Quarter: 2006Q3

REPORT INFORMATION
  Report Type: 
  Country: None (occurrence: None)
  Receive Date: 20060828
  Receipt Date: 20060710
  Transmission Date: 20061208
  Serious: Yes (Hospitalization)
  Sender: FDA-Public Use
  Company Number: US-BOEHRINGER INGELHEIM PHARMACEUTICALS, INC.-2006-BP-07843BP

PATIENT
  Sex: Female

DRUGS (4)
  1. SPIRIVA [Suspect]
     Indication: CHRONIC OBSTRUCTIVE PULMONARY DISEASE
     Route: 055
     Dates: start: 20060401
  2. SPIRIVA [Suspect]
     Indication: ASTHMA
  3. SINGULAIR [Concomitant]
  4. NEURONTIN [Concomitant]

REACTIONS (4)
  - DYSPHONIA [None]
  - PNEUMONIA [None]
  - RHEUMATOID ARTHRITIS [None]
  - VISION BLURRED [None]
